FAERS Safety Report 7741597-3 (Version None)
Quarter: 2011Q3

REPORT INFORMATION
  Report Type: 
  Country: None (occurrence: None)
  Receive Date: 20110909
  Receipt Date: 20110831
  Transmission Date: 20111222
  Serious: Yes (Hospitalization, Other)
  Sender: FDA-Public Use
  Company Number: US-ASTRAZENECA-2011SE52604

PATIENT
  Age: 55 Year
  Sex: Female
  Weight: 72.6 kg

DRUGS (1)
  1. SEROQUEL [Suspect]
     Indication: SLEEP DISORDER
     Route: 048

REACTIONS (6)
  - HALLUCINATION [None]
  - APHASIA [None]
  - FAECAL INCONTINENCE [None]
  - URINARY INCONTINENCE [None]
  - DRUG DOSE OMISSION [None]
  - APATHY [None]
